FAERS Safety Report 15385211 (Version 1)
Quarter: 2018Q3

REPORT INFORMATION
  Report Type: Spontaneous
  Country: US (occurrence: US)
  Receive Date: 20180907
  Receipt Date: 20180907
  Transmission Date: 20181010
  Serious: Yes (Hospitalization)
  Sender: FDA-Public Use
  Company Number: None

PATIENT
  Age: 73 Year
  Sex: Male

DRUGS (2)
  1. WARFARIN [Suspect]
     Active Substance: WARFARIN
     Indication: ATRIAL FIBRILLATION
     Route: 048
  2. WARFARIN [Suspect]
     Active Substance: WARFARIN
     Indication: CARDIOVASCULAR DISORDER
     Route: 048

REACTIONS (5)
  - Eye haemorrhage [None]
  - Abdominal pain lower [None]
  - Fall [None]
  - Back pain [None]
  - Haemorrhage intracranial [None]

NARRATIVE: CASE EVENT DATE: 20180720
